FAERS Safety Report 6079940-6 (Version None)
Quarter: 2009Q1

REPORT INFORMATION
  Report Type: 
  Country: None (occurrence: None)
  Receive Date: 20090217
  Receipt Date: 20090204
  Transmission Date: 20090719
  Serious: Yes (Other)
  Sender: FDA-Public Use
  Company Number: PHHY2009DE05199

PATIENT
  Age: 20 Year
  Sex: Male

DRUGS (1)
  1. EXFORGE [Suspect]
     Indication: HYPERTENSION
     Route: 048

REACTIONS (3)
  - HEADACHE [None]
  - HYPERTENSION [None]
  - RENAL ARTERY STENOSIS [None]
